FAERS Safety Report 4431557-2 (Version None)
Quarter: 2004Q3

REPORT INFORMATION
  Report Type: 
  Country: None (occurrence: None)
  Receive Date: 20040824
  Receipt Date: 20040803
  Transmission Date: 20050211
  Serious: Yes (Hospitalization)
  Sender: FDA-Public Use
  Company Number: GB-MERCK-0408GBR00036

PATIENT
  Age: 63 Year
  Sex: Female

DRUGS (6)
  1. BENDROFLUMETHIAZIDE [Concomitant]
     Route: 065
     Dates: start: 19990101
  2. ENALAPRIL MALEATE [Concomitant]
     Route: 065
     Dates: start: 19990101
  3. FLOXACILLIN [Concomitant]
     Route: 065
     Dates: start: 19990101
  4. LEVOTHYROXINE SODIUM [Concomitant]
     Route: 065
     Dates: start: 19990101
  5. PAROXETINE [Concomitant]
     Route: 065
     Dates: start: 19990101
  6. VIOXX [Suspect]
     Indication: ARTHRITIS
     Route: 048
     Dates: start: 20040101, end: 20040709

REACTIONS (4)
  - CELLULITIS [None]
  - RASH GENERALISED [None]
  - WOUND INFECTION STAPHYLOCOCCAL [None]
  - WOUND SECRETION [None]
